FAERS Safety Report 6717166-0 (Version None)
Quarter: 2010Q2

REPORT INFORMATION
  Report Type: 
  Country: None (occurrence: None)
  Receive Date: 20100510
  Receipt Date: 20100503
  Transmission Date: 20101027
  Serious: Yes (Hospitalization)
  Sender: FDA-Public Use
  Company Number: FR-ASTRAZENECA-2010SE19924

PATIENT
  Sex: Male

DRUGS (1)
  1. ZOMIG-ZMT [Suspect]
     Indication: MIGRAINE
     Route: 060
     Dates: end: 20091204

REACTIONS (2)
  - DRUG DEPENDENCE [None]
  - HEADACHE [None]
